FAERS Safety Report 6915438-8 (Version None)
Quarter: 2010Q3

REPORT INFORMATION
  Report Type: 
  Country: None (occurrence: None)
  Receive Date: 20100809
  Receipt Date: 20100625
  Transmission Date: 20110219
  Serious: Yes (Other)
  Sender: FDA-Public Use
  Company Number: US-ABBOTT-10P-163-0652285-00

PATIENT
  Age: 11 Year
  Sex: Female

DRUGS (2)
  1. DEPAKOTE ER [Suspect]
     Indication: LENNOX-GASTAUT SYNDROME
     Dates: start: 20050101
  2. BANZEL [Concomitant]
     Indication: LENNOX-GASTAUT SYNDROME
     Dates: start: 20090101

REACTIONS (1)
  - CONVULSION [None]
